FAERS Safety Report 13178460 (Version 1)
Quarter: 2017Q1

REPORT INFORMATION
  Report Type: Spontaneous
  Country: US (occurrence: US)
  Receive Date: 20170201
  Receipt Date: 20170201
  Transmission Date: 20170428
  Serious: Yes (Hospitalization)
  Sender: FDA-Public Use
  Company Number: None

PATIENT
  Age: 22 Year
  Sex: Male
  Weight: 83 kg

DRUGS (1)
  1. SULFASALAZINE. [Suspect]
     Active Substance: SULFASALAZINE
     Indication: RHEUMATOID ARTHRITIS
     Route: 048
     Dates: start: 20160627, end: 20160928

REACTIONS (10)
  - Hallucinations, mixed [None]
  - Drug screen positive [None]
  - Incontinence [None]
  - Acute psychosis [None]
  - Agitation [None]
  - Hypomania [None]
  - Diarrhoea [None]
  - Inappropriate affect [None]
  - Mood altered [None]
  - Incorrect dose administered [None]

NARRATIVE: CASE EVENT DATE: 20160930
